FAERS Safety Report 6294718-6 (Version None)
Quarter: 2009Q3

REPORT INFORMATION
  Report Type: 
  Country: None (occurrence: None)
  Receive Date: 20090803
  Receipt Date: 20090728
  Transmission Date: 20100115
  Serious: Yes (Other)
  Sender: FDA-Public Use
  Company Number: B0586015A

PATIENT
  Age: 27 Year
  Sex: Female

DRUGS (1)
  1. ZOVIRAX [Suspect]
     Indication: HERPES VIRUS INFECTION
     Dosage: 200MG TWICE PER DAY
     Route: 048

REACTIONS (4)
  - ANAEMIA [None]
  - ERYTHEMA [None]
  - PRURITUS [None]
  - RENAL FUNCTION TEST ABNORMAL [None]
